FAERS Safety Report 7652313-8 (Version None)
Quarter: 2011Q3

REPORT INFORMATION
  Report Type: 
  Country: None (occurrence: None)
  Receive Date: 20110803
  Receipt Date: 20110726
  Transmission Date: 20111222
  Serious: Yes (Other)
  Sender: FDA-Public Use
  Company Number: JP-PAR PHARMACEUTICAL, INC-2011SCPR003137

PATIENT

DRUGS (6)
  1. ETOPOSIDE [Suspect]
     Indication: MEDULLOBLASTOMA
     Dosage: UNK, UNKNOWN
     Route: 065
  2. VINCRISTINE [Suspect]
     Indication: MEDULLOBLASTOMA
     Dosage: UNK, UNKNOWN
     Route: 065
  3. CISPLATIN [Suspect]
     Indication: MEDULLOBLASTOMA
     Dosage: UNK, UNKNOWN
     Route: 065
  4. METHOTREXATE [Suspect]
     Indication: MEDULLOBLASTOMA
     Dosage: UNK, UNKNOWN
  5. CYCLOPHOSPHAMIDE [Suspect]
     Indication: MEDULLOBLASTOMA
     Dosage: UNK, UNKNOWN
     Route: 065
  6. DEXAMETHASONE [Suspect]
     Indication: MEDULLOBLASTOMA
     Dosage: UNK, UNKNOWN

REACTIONS (3)
  - CYTOMEGALOVIRUS INFECTION [None]
  - EPSTEIN-BARR VIRUS ASSOCIATED LYMPHOPROLIFERATIVE DISORDER [None]
  - ENCEPHALITIS VIRAL [None]
